FAERS Safety Report 5777064-6 (Version None)
Quarter: 2008Q2

REPORT INFORMATION
  Report Type: 
  Country: None (occurrence: None)
  Receive Date: 20080617
  Receipt Date: 20070531
  Transmission Date: 20081010
  Serious: No
  Sender: FDA-Public Use
  Company Number: 2007BH004940

PATIENT
  Sex: Male

DRUGS (3)
  1. HEPARIN SODIUM [Suspect]
     Indication: HEART VALVE REPLACEMENT
     Dosage: IV
     Route: 042
     Dates: start: 20070101, end: 20070101
  2. COUMADIN [Suspect]
     Indication: ANTICOAGULANT THERAPY
     Dosage: PO
     Route: 048
     Dates: start: 20070101
  3. AGGRASTATIN [Suspect]
     Indication: ANTICOAGULANT THERAPY
     Dosage: IV
     Route: 042
     Dates: start: 20070101

REACTIONS (1)
  - PLATELET COUNT DECREASED [None]
